APPROVED DRUG PRODUCT: NIMODIPINE
Active Ingredient: NIMODIPINE
Strength: 30MG
Dosage Form/Route: CAPSULE;ORAL
Application: A077067 | Product #001
Applicant: SUN PHARMACEUTICAL INDUSTRIES INC
Approved: Apr 17, 2007 | RLD: No | RS: No | Type: DISCN